FAERS Safety Report 5036978-5 (Version None)
Quarter: 2006Q2

REPORT INFORMATION
  Report Type: 
  Country: None (occurrence: None)
  Receive Date: 20060601
  Receipt Date: 20060424
  Transmission Date: 20061013
  Serious: Yes (Other)
  Sender: FDA-Public Use
  Company Number: US200604001678

PATIENT
  Age: 47 Year
  Sex: Female
  Weight: 126.1 kg

DRUGS (10)
  1. CYMBALTA [Suspect]
     Indication: ANXIETY
     Dosage: SEE IMAGE
     Dates: start: 20050101, end: 20060319
  2. CYMBALTA [Suspect]
     Indication: ANXIETY
     Dosage: SEE IMAGE
     Dates: start: 20051101, end: 20060404
  3. CYMBALTA [Suspect]
     Indication: ANXIETY
     Dosage: SEE IMAGE
     Dates: start: 20060320, end: 20060404
  4. LOTREL [Concomitant]
  5. ALBUTEROL [Concomitant]
  6. TYLENOL W/ CODEINE [Concomitant]
  7. KLONOPIN [Concomitant]
  8. CIPRO [Concomitant]
  9. NONE [Concomitant]
  10. NONE [Concomitant]

REACTIONS (21)
  - AGGRESSION [None]
  - ALCOHOL USE [None]
  - BLOOD PRESSURE DIASTOLIC INCREASED [None]
  - DIZZINESS [None]
  - DRY MOUTH [None]
  - FOOD CRAVING [None]
  - HYPERHIDROSIS [None]
  - INSOMNIA [None]
  - IRRITABILITY [None]
  - MALAISE [None]
  - MANIA [None]
  - NAUSEA [None]
  - NICOTINE DEPENDENCE [None]
  - PALPITATIONS [None]
  - PARAESTHESIA [None]
  - RESTLESSNESS [None]
  - STRESS INCONTINENCE [None]
  - THIRST [None]
  - TREMOR [None]
  - VERBAL ABUSE [None]
  - WEIGHT DECREASED [None]
